FAERS Safety Report 13703042 (Version 1)
Quarter: 2017Q2

REPORT INFORMATION
  Report Type: Spontaneous
  Country: FR (occurrence: FR)
  Receive Date: 20170629
  Receipt Date: 20170629
  Transmission Date: 20170830
  Serious: Yes (Death)
  Sender: FDA-Public Use
  Company Number: FR-ASTRAZENECA-2017SE66255

PATIENT
  Age: 29168 Day
  Sex: Female

DRUGS (7)
  1. REVATIO [Suspect]
     Active Substance: SILDENAFIL CITRATE
     Indication: PULMONARY ARTERIAL HYPERTENSION
     Dosage: UNKNOWN DAILY DOSE
     Route: 065
     Dates: start: 2009
  2. PREVISCAN [Suspect]
     Active Substance: FLUINDIONE
     Route: 065
  3. LASILIX [Suspect]
     Active Substance: FUROSEMIDE
     Route: 065
  4. INEXIUM [Suspect]
     Active Substance: ESOMEPRAZOLE
     Route: 048
  5. TRACLEER [Suspect]
     Active Substance: BOSENTAN
     Indication: PULMONARY ARTERIAL HYPERTENSION
     Dosage: UNKNOWN DAILY DOSE
     Route: 065
     Dates: start: 2002
  6. ALDACTONE [Suspect]
     Active Substance: SPIRONOLACTONE
     Route: 065
  7. SEROPLEX [Suspect]
     Active Substance: ESCITALOPRAM OXALATE
     Route: 065

REACTIONS (1)
  - Cardio-respiratory arrest [Fatal]

NARRATIVE: CASE EVENT DATE: 20170505
